FAERS Safety Report 6637900-8 (Version None)
Quarter: 2010Q1

REPORT INFORMATION
  Report Type: 
  Country: None (occurrence: None)
  Receive Date: 20100315
  Receipt Date: 20100315
  Transmission Date: 20100710
  Serious: Yes (Life-Threatening, Disabling, Other)
  Sender: FDA-Public Use
  Company Number: None

PATIENT
  Age: 29 Year
  Sex: Female
  Weight: 58.9676 kg

DRUGS (2)
  1. CYMBALTA [Suspect]
     Indication: ANXIETY
     Dates: start: 20081101, end: 20090301
  2. CYMBALTA [Suspect]
     Indication: POSTPARTUM DEPRESSION
     Dates: start: 20081101, end: 20090301

REACTIONS (1)
  - URINARY RETENTION [None]
